FAERS Safety Report 10528318 (Version 1)
Quarter: 2014Q4

REPORT INFORMATION
  Report Type: Spontaneous
  Country: US (occurrence: None)
  Receive Date: 20141017
  Receipt Date: 20141017
  Transmission Date: 20150528
  Serious: Yes (Disabling, Other)
  Sender: FDA-Public Use
  Company Number: None

PATIENT
  Age: 25 Year
  Sex: Female
  Weight: 65.77 kg

DRUGS (1)
  1. IMPLANON [Suspect]
     Active Substance: ETONOGESTREL
     Indication: CONTRACEPTION
     Dates: start: 20120815, end: 20141016

REACTIONS (6)
  - Vaginal haemorrhage [None]
  - Breast mass [None]
  - Pruritus [None]
  - Urticaria [None]
  - Menstruation irregular [None]
  - Paraesthesia [None]

NARRATIVE: CASE EVENT DATE: 20141016
